FAERS Safety Report 25645744 (Version 1)
Quarter: 2025Q3

REPORT INFORMATION
  Report Type: Spontaneous
  Country: CN (occurrence: CN)
  Receive Date: 20250805
  Receipt Date: 20250805
  Transmission Date: 20251021
  Serious: Yes (Disabling, Other)
  Sender: PFIZER
  Company Number: CN-PFIZER INC-PV202500092809

PATIENT
  Age: 5 Year
  Sex: Female
  Weight: 17 kg

DRUGS (1)
  1. CYTARABINE [Suspect]
     Active Substance: CYTARABINE
     Indication: Central nervous system leukaemia
     Dosage: 0.035 G, 1X/DAY
     Route: 037
     Dates: start: 20250614, end: 20250614

REACTIONS (5)
  - Granulocyte count decreased [Unknown]
  - White blood cell count decreased [Unknown]
  - Pruritus [Unknown]
  - Rash [Unknown]
  - Lichenification [Unknown]

NARRATIVE: CASE EVENT DATE: 20250713
